FAERS Safety Report 12708912 (Version 1)
Quarter: 2016Q3

REPORT INFORMATION
  Report Type: Spontaneous
  Country: US (occurrence: US)
  Receive Date: 20160901
  Receipt Date: 20160901
  Transmission Date: 20161109
  Serious: No
  Sender: FDA-Public Use
  Company Number: US-JAZZ-2016-US-008406

PATIENT
  Sex: Male

DRUGS (47)
  1. ACIDOPHILUS XTRA [Concomitant]
  2. PAXIL [Concomitant]
     Active Substance: PAROXETINE HYDROCHLORIDE
  3. GABITRIL [Concomitant]
     Active Substance: TIAGABINE HYDROCHLORIDE
  4. CALCIUM MAGNESIUM [Concomitant]
     Active Substance: CALCIUM\MAGNESIUM
  5. VITAMIN D [Concomitant]
     Active Substance: CHOLECALCIFEROL
  6. XYREM [Suspect]
     Active Substance: SODIUM OXYBATE
     Dosage: 5 G, FIRST DOSE
     Route: 048
     Dates: start: 201603
  7. CATAPRES [Concomitant]
     Active Substance: CLONIDINE HYDROCHLORIDE
  8. FENOFIBRATE. [Concomitant]
     Active Substance: FENOFIBRATE
  9. PROTRIPTYLINE HCL [Concomitant]
  10. RILUTEK [Concomitant]
     Active Substance: RILUZOLE
  11. VYTORIN [Concomitant]
     Active Substance: EZETIMIBE\SIMVASTATIN
  12. XYREM [Suspect]
     Active Substance: SODIUM OXYBATE
     Dosage: 2 G, THIRD DOSE
     Route: 048
     Dates: start: 201603
  13. REMERON [Suspect]
     Active Substance: MIRTAZAPINE
     Indication: PRODUCT USED FOR UNKNOWN INDICATION
     Dosage: UNK
  14. ATORVASTATIN [Concomitant]
     Active Substance: ATORVASTATIN
  15. CLEOCIN [Concomitant]
     Active Substance: CLINDAMYCIN PHOSPHATE
  16. NORCO [Concomitant]
     Active Substance: ACETAMINOPHEN\HYDROCODONE BITARTRATE
  17. VITAMIN C [Concomitant]
     Active Substance: ASCORBIC ACID
  18. ATORVASTATIN [Concomitant]
     Active Substance: ATORVASTATIN
  19. NAPROXEN. [Concomitant]
     Active Substance: NAPROXEN
  20. MULTIVITAMINS [Concomitant]
     Active Substance: VITAMINS
  21. VITAMIN E [Concomitant]
     Active Substance: .ALPHA.-TOCOPHEROL
  22. ASPIRIN. [Concomitant]
     Active Substance: ASPIRIN
  23. XYREM [Suspect]
     Active Substance: SODIUM OXYBATE
     Dosage: 3 G, SECOND DOSE
     Route: 048
     Dates: start: 201603
  24. BACLOFEN. [Concomitant]
     Active Substance: BACLOFEN
  25. AMOXICILLIN. [Concomitant]
     Active Substance: AMOXICILLIN
  26. KETOCONAZOLE. [Concomitant]
     Active Substance: KETOCONAZOLE
  27. SEROQUEL [Concomitant]
     Active Substance: QUETIAPINE FUMARATE
  28. LISINOPRIL. [Concomitant]
     Active Substance: LISINOPRIL
  29. ASPIRIN. [Concomitant]
     Active Substance: ASPIRIN
  30. DIAZEPAM. [Concomitant]
     Active Substance: DIAZEPAM
  31. FENOFIBRATE. [Concomitant]
     Active Substance: FENOFIBRATE
  32. VICODIN [Concomitant]
     Active Substance: ACETAMINOPHEN\HYDROCODONE BITARTRATE
  33. PRAZOSIN HCL [Concomitant]
     Active Substance: PRAZOSIN HYDROCHLORIDE
  34. SEROQUEL [Concomitant]
     Active Substance: QUETIAPINE FUMARATE
  35. XYREM [Suspect]
     Active Substance: SODIUM OXYBATE
     Indication: SLEEP DISORDER
     Dosage: 4.5 G, BID
     Route: 048
     Dates: start: 200611, end: 200710
  36. SEROQUEL [Concomitant]
     Active Substance: QUETIAPINE FUMARATE
  37. PARNATE [Concomitant]
     Active Substance: TRANYLCYPROMINE SULFATE
  38. TRAMADOL HCL [Concomitant]
     Active Substance: TRAMADOL HYDROCHLORIDE
  39. XYREM [Suspect]
     Active Substance: SODIUM OXYBATE
     Dosage: DOSE ADJUSTMENTS
     Route: 048
  40. ASPIRIN. [Concomitant]
     Active Substance: ASPIRIN
  41. FLEXERIL [Concomitant]
     Active Substance: CYCLOBENZAPRINE HYDROCHLORIDE
  42. PROPRANOLOL [Concomitant]
     Active Substance: PROPRANOLOL\PROPRANOLOL HYDROCHLORIDE
  43. IBUPROFEN. [Concomitant]
     Active Substance: IBUPROFEN
  44. GUAIFENESIN. [Concomitant]
     Active Substance: GUAIFENESIN
  45. ABILIFY [Concomitant]
     Active Substance: ARIPIPRAZOLE
  46. GABAPENTIN. [Concomitant]
     Active Substance: GABAPENTIN
  47. ZYPREXA [Concomitant]
     Active Substance: OLANZAPINE

REACTIONS (1)
  - Somnolence [Unknown]
